FAERS Safety Report 5203220-1 (Version None)
Quarter: 2006Q4

REPORT INFORMATION
  Report Type: 
  Country: None (occurrence: None)
  Receive Date: 20061027
  Receipt Date: 20060830
  Transmission Date: 20070319
  Serious: Yes (Other)
  Sender: FDA-Public Use
  Company Number: HQWYE369006SEP06

PATIENT
  Age: 53 Year
  Sex: Female

DRUGS (7)
  1. PREMARIN [Suspect]
     Indication: DRUG USE FOR UNKNOWN INDICATION
  2. CLIMARA [Suspect]
     Indication: DRUG USE FOR UNKNOWN INDICATION
  3. ESTRACE [Suspect]
     Indication: DRUG USE FOR UNKNOWN INDICATION
  4. ESTRADIOL [Suspect]
     Indication: DRUG USE FOR UNKNOWN INDICATION
  5. ESTRATEST [Suspect]
     Indication: DRUG USE FOR UNKNOWN INDICATION
  6. PROGESTERONE [Suspect]
     Indication: DRUG USE FOR UNKNOWN INDICATION
  7. PROVERA [Suspect]
     Indication: DRUG USE FOR UNKNOWN INDICATION

REACTIONS (1)
  - BREAST CANCER [None]
